FAERS Safety Report 5707362-3 (Version None)
Quarter: 2008Q2

REPORT INFORMATION
  Report Type: 
  Country: None (occurrence: None)
  Receive Date: 20080416
  Receipt Date: 20080409
  Transmission Date: 20081010
  Serious: No
  Sender: FDA-Public Use
  Company Number: US-BAXTER-2008BH002995

PATIENT
  Age: 46 Year
  Sex: Female

DRUGS (1)
  1. HEPARIN SODIUM [Suspect]
     Indication: BLADDER IRRIGATION
     Dosage: DOSE UNIT:UNKNOWN
     Route: 043
     Dates: start: 20080209, end: 20080209

REACTIONS (6)
  - ABDOMINAL PAIN UPPER [None]
  - ADVERSE EVENT [None]
  - BACK PAIN [None]
  - HYPERHIDROSIS [None]
  - PAIN IN EXTREMITY [None]
  - VAGINAL PAIN [None]
